FAERS Safety Report 5551534-8 (Version None)
Quarter: 2007Q4

REPORT INFORMATION
  Report Type: 
  Country: None (occurrence: None)
  Receive Date: 20071212
  Receipt Date: 20071206
  Transmission Date: 20080405
  Serious: Yes (Death)
  Sender: FDA-Public Use
  Company Number: GB-BAXTER-2007BH009561

PATIENT
  Sex: Male

DRUGS (1)
  1. SODIUM CHLORIDE AND POTASSIUM CHLORIDE INJECTIONS IN PLASTIC CONTAINER [Suspect]
     Indication: DRUG USE FOR UNKNOWN INDICATION
     Dosage: DOSE UNIT:UNKNOWN
     Route: 065

REACTIONS (2)
  - ACCIDENTAL EXPOSURE [None]
  - SEPSIS [None]
